FAERS Safety Report 15936298 (Version 1)
Quarter: 2019Q1

REPORT INFORMATION
  Report Type: Spontaneous
  Country: FR (occurrence: FR)
  Receive Date: 20190208
  Receipt Date: 20190208
  Transmission Date: 20190417
  Serious: Yes (Hospitalization, Other)
  Sender: FDA-Public Use
  Company Number: FR-VIIV HEALTHCARE LIMITED-FR2019019777

PATIENT
  Age: 59 Year
  Sex: Male
  Weight: 125 kg

DRUGS (1)
  1. TRIUMEQ [Suspect]
     Active Substance: ABACAVIR SULFATE\DOLUTEGRAVIR SODIUM\LAMIVUDINE
     Indication: HIV INFECTION
     Dosage: 1 DF, UNK
     Route: 048
     Dates: start: 20170710

REACTIONS (2)
  - Mitral valve incompetence [Recovered/Resolved with Sequelae]
  - Chordae tendinae rupture [Recovered/Resolved with Sequelae]

NARRATIVE: CASE EVENT DATE: 20181001
